FAERS Safety Report 11555117 (Version 1)
Quarter: 2015Q3

REPORT INFORMATION
  Report Type: Spontaneous
  Country: US (occurrence: US)
  Receive Date: 20150925
  Receipt Date: 20150925
  Transmission Date: 20151125
  Serious: Yes (Other)
  Sender: FDA-Public Use
  Company Number: US-SHIRE-US201511857

PATIENT
  Sex: Female

DRUGS (3)
  1. LIALDA [Suspect]
     Active Substance: MESALAMINE
     Indication: COLITIS ULCERATIVE
     Dosage: 1.2 G, UNKNOWN
     Route: 048
     Dates: start: 2014
  2. LIALDA [Suspect]
     Active Substance: MESALAMINE
     Dosage: 1.2 G, UNKNOWN
     Route: 048
  3. LIALDA [Suspect]
     Active Substance: MESALAMINE
     Dosage: UNK UNK, UNKNOWN
     Route: 048

REACTIONS (3)
  - Acne [Not Recovered/Not Resolved]
  - Furuncle [Not Recovered/Not Resolved]
  - Colitis ulcerative [Unknown]
